FAERS Safety Report 20327427 (Version 1)
Quarter: 2022Q1

REPORT INFORMATION
  Report Type: Spontaneous
  Country: US (occurrence: None)
  Receive Date: 20220111
  Receipt Date: 20220111
  Transmission Date: 20220423
  Serious: Yes (unspecified)
  Sender: FDA-Public Use
  Company Number: None

PATIENT
  Age: 32 Year
  Sex: Female
  Weight: 92.25 kg

DRUGS (1)
  1. CASIRIVIMAB\IMDEVIMAB [Suspect]
     Active Substance: CASIRIVIMAB\IMDEVIMAB
     Indication: COVID-19

REACTIONS (7)
  - Infusion related reaction [None]
  - Flushing [None]
  - Rash [None]
  - Rash [None]
  - Pruritus [None]
  - Cough [None]
  - Nausea [None]

NARRATIVE: CASE EVENT DATE: 20220106
